FAERS Safety Report 9893064 (Version 1)
Quarter: 2014Q1

REPORT INFORMATION
  Report Type: Report from Study
  Country: US (occurrence: US)
  Receive Date: 20140213
  Receipt Date: 20140213
  Transmission Date: 20141002
  Serious: Yes (Other)
  Sender: FDA-Public Use
  Company Number: US-ROCHE-1346917

PATIENT
  Sex: Male
  Weight: 65.83 kg

DRUGS (5)
  1. PEGASYS [Suspect]
     Indication: HEPATITIS C
     Route: 058
     Dates: start: 201308
  2. PEGASYS [Suspect]
     Route: 065
     Dates: start: 20130917
  3. PEGASYS [Suspect]
     Route: 058
     Dates: start: 20131224
  4. COPEGUS [Suspect]
     Indication: HEPATITIS C
     Route: 048
     Dates: start: 20130917
  5. BOCEPREVIR [Suspect]
     Indication: HEPATITIS C
     Route: 065

REACTIONS (2)
  - Leukopenia [Recovering/Resolving]
  - Neutropenia [Recovering/Resolving]
